FAERS Safety Report 19886426 (Version 8)
Quarter: 2022Q3

REPORT INFORMATION
  Report Type: Report from Study
  Country: US (occurrence: US)
  Receive Date: 20210928
  Receipt Date: 20220901
  Transmission Date: 20221027
  Serious: No
  Sender: FDA-Public Use
  Company Number: NVSC2021US218682

PATIENT
  Age: 52 Year
  Sex: Female

DRUGS (3)
  1. ENTRESTO [Suspect]
     Active Substance: SACUBITRIL\VALSARTAN
     Indication: Product used for unknown indication
     Dosage: 0.5 DOSAGE FORM (1/2 TABS)
     Route: 065
  2. ENTRESTO [Suspect]
     Active Substance: SACUBITRIL\VALSARTAN
     Dosage: UNK, UNKNOWN (TAKING 1 WHOLE TABLE IN THE MORNING AND 1 WHOLE TABLET IN THE EVENING)
     Route: 065
  3. PLAVIX [Concomitant]
     Active Substance: CLOPIDOGREL BISULFATE
     Indication: Product used for unknown indication
     Dosage: UNK
     Route: 065

REACTIONS (13)
  - Overweight [Unknown]
  - Arthralgia [Unknown]
  - Asthenia [Unknown]
  - Decreased activity [Unknown]
  - Fall [Unknown]
  - Ankle fracture [Unknown]
  - Joint swelling [Unknown]
  - Nutritional condition abnormal [Unknown]
  - Pernicious anaemia [Unknown]
  - Depression [Unknown]
  - Fatigue [Unknown]
  - Inappropriate schedule of product administration [Unknown]
  - Wrong technique in product usage process [Unknown]
